FAERS Safety Report 11670123 (Version 1)
Quarter: 2015Q4

REPORT INFORMATION
  Report Type: Spontaneous
  Country: US (occurrence: US)
  Receive Date: 20151027
  Receipt Date: 20151027
  Transmission Date: 20160304
  Serious: No
  Sender: FDA-Public Use
  Company Number: US-ELI_LILLY_AND_COMPANY-US201004007809

PATIENT
  Sex: Female

DRUGS (6)
  1. LISINOPRIL. [Concomitant]
     Active Substance: LISINOPRIL
  2. FORTEO [Suspect]
     Active Substance: TERIPARATIDE
     Indication: OSTEOPOROSIS
     Dosage: 20 UG, DAILY (1/D)
     Dates: start: 2010
  3. LYRICA [Concomitant]
     Active Substance: PREGABALIN
  4. HYDROCODONE [Concomitant]
     Active Substance: HYDROCODONE
  5. VITAMINS NOS [Concomitant]
     Active Substance: VITAMINS
  6. CELEBREX [Concomitant]
     Active Substance: CELECOXIB

REACTIONS (4)
  - Pain [Unknown]
  - Movement disorder [Unknown]
  - Hypoaesthesia [Unknown]
  - Oedema peripheral [Unknown]

NARRATIVE: CASE EVENT DATE: 2010
